FAERS Safety Report 12423709 (Version 1)
Quarter: 2016Q2

REPORT INFORMATION
  Report Type: Spontaneous
  Country: US (occurrence: None)
  Receive Date: 20160531
  Receipt Date: 20160531
  Transmission Date: 20160815
  Serious: Yes (Hospitalization)
  Sender: FDA-Public Use
  Company Number: None

PATIENT
  Age: 37 Year
  Sex: Female
  Weight: 94 kg

DRUGS (21)
  1. NIFEDIPINE. [Concomitant]
     Active Substance: NIFEDIPINE
  2. TERAZOSIN (HYTRIN) [Concomitant]
  3. ASPIRIN. [Concomitant]
     Active Substance: ASPIRIN
  4. FIBER SELECT GUMMIES [Concomitant]
  5. PROTONIX [Concomitant]
     Active Substance: PANTOPRAZOLE SODIUM
  6. PROCHLORPERAZINE (COMPAZINE) [Concomitant]
  7. DIPHENOXYLATE-ATROPINE (LOMOTIL) [Concomitant]
  8. MYCOPHENOLATE SODIUM (MYFORTIC) [Concomitant]
  9. TACROLIMUS. [Concomitant]
     Active Substance: TACROLIMUS
  10. PLAQUENIL [Concomitant]
     Active Substance: HYDROXYCHLOROQUINE SULFATE
  11. METOPROLOL TARTRATE (LOPRESSOR) [Concomitant]
  12. ZYRTEC [Concomitant]
     Active Substance: CETIRIZINE HYDROCHLORIDE
  13. OXYCODONE [Concomitant]
     Active Substance: OXYCODONE
  14. ALBUTEROL HFA [Concomitant]
     Active Substance: ALBUTEROL SULFATE
  15. CALCIUM CARB-CHOLECALCIFEROL (RA CALCIUM PLUS VITAMIN D3) [Concomitant]
  16. MULTIVITAMIN WITH MINERALS [Concomitant]
     Active Substance: MINERALS\VITAMINS
  17. LEVOFLOXACIN, 500 MG [Suspect]
     Active Substance: LEVOFLOXACIN
     Indication: SINUSITIS
     Route: 048
     Dates: start: 20151127, end: 20151202
  18. ACETAMINOPHEN (TYLOENOL) [Concomitant]
  19. MIRALAX [Concomitant]
     Active Substance: POLYETHYLENE GLYCOL 3350
  20. SUMATRIPTAN (IMITREX) [Concomitant]
  21. ZOFRAN [Concomitant]
     Active Substance: ONDANSETRON HYDROCHLORIDE

REACTIONS (2)
  - Pain in extremity [None]
  - Asthenia [None]

NARRATIVE: CASE EVENT DATE: 20151206
